FAERS Safety Report 5978536-1 (Version None)
Quarter: 2008Q4

REPORT INFORMATION
  Report Type: 
  Country: None (occurrence: None)
  Receive Date: 20081204
  Receipt Date: 20080519
  Transmission Date: 20090506
  Serious: No
  Sender: FDA-Public Use
  Company Number: US-BAYER-200714236BCC

PATIENT
  Age: 57 Year
  Sex: Male
  Weight: 127 kg

DRUGS (5)
  1. ALEVE (CAPLET) [Suspect]
     Indication: ANALGESIA
     Dosage: AS USED: 220 MG  UNIT DOSE: 220 MG
     Route: 048
     Dates: start: 20071217, end: 20071218
  2. ALEVE (CAPLET) [Suspect]
     Dosage: TOTAL DAILY DOSE: 880 MG  UNIT DOSE: 220 MG
     Route: 048
     Dates: start: 20071113
  3. TRAMADOL HCL [Concomitant]
     Indication: ANALGESIA
  4. GABAPENTIN [Concomitant]
     Indication: ANALGESIA
  5. ENALAPRIL MALEATE [Concomitant]

REACTIONS (3)
  - PRURITUS [None]
  - RASH [None]
  - SKIN LESION [None]
